FAERS Safety Report 8502378-6 (Version None)
Quarter: 2012Q3

REPORT INFORMATION
  Report Type: 
  Country: None (occurrence: None)
  Receive Date: 20120711
  Receipt Date: 20120703
  Transmission Date: 20120928
  Serious: Yes (Other)
  Sender: FDA-Public Use
  Company Number: JP-JNJFOC-20120701285

PATIENT

DRUGS (1)
  1. HALOPERIDOL [Suspect]
     Indication: BEHAVIOURAL AND PSYCHIATRIC SYMPTOMS OF DEMENTIA
     Dosage: AVERAGE DOSE OF 2.25 MG/DAY  IN 4 YEARS AND 2 MONTHS
     Route: 065

REACTIONS (2)
  - FRACTURE [None]
  - FALL [None]
